FAERS Safety Report 6536792-5 (Version None)
Quarter: 2010Q1

REPORT INFORMATION
  Report Type: 
  Country: None (occurrence: None)
  Receive Date: 20100113
  Receipt Date: 20100107
  Transmission Date: 20100710
  Serious: Yes (Other)
  Sender: FDA-Public Use
  Company Number: US-PFIZER INC-2010003633

PATIENT
  Sex: Female
  Weight: 74.83 kg

DRUGS (1)
  1. NEURONTIN [Suspect]
     Indication: PAIN IN EXTREMITY
     Route: 048
     Dates: start: 20091222, end: 20091225

REACTIONS (2)
  - GAIT DISTURBANCE [None]
  - THROMBOSIS [None]
